FAERS Safety Report 8927760 (Version 1)
Quarter: 2012Q4

REPORT INFORMATION
  Report Type: 
  Country: US (occurrence: US)
  Receive Date: 20121126
  Receipt Date: 20121126
  Transmission Date: 20130627
  Serious: No
  Sender: FDA-Public Use
  Company Number: US-VERTEX PHARMACEUTICAL INC.-2012-024751

PATIENT
  Age: 61 Year
  Sex: Female
  Weight: 60 kg

DRUGS (9)
  1. VX-950 (TELAPREVIR) [Suspect]
     Indication: HEPATITIS C
     Dosage: 750 mg, tid
     Route: 048
  2. PEGASYS [Concomitant]
     Indication: HEPATITIS C
     Dosage: 180 ?g, UNK
  3. RIBAVIRIN [Concomitant]
     Indication: HEPATITIS C
     Dosage: 200 UNK, UNK
  4. CELEXA                             /00582602/ [Concomitant]
     Dosage: 10 mg, UNK
  5. REGLAN                             /00041901/ [Concomitant]
     Dosage: 10 mg, UNK
  6. KEPPRA [Concomitant]
     Dosage: 500 mg, UNK
  7. CALCIUM [Concomitant]
  8. MULTIVITAMIN                       /00097801/ [Concomitant]
  9. TYLENOL /00020001/ [Concomitant]
     Dosage: 325 mg, UNK

REACTIONS (3)
  - Pruritus [Unknown]
  - Haematocrit decreased [Unknown]
  - Nausea [Unknown]
